FAERS Safety Report 10045631 (Version 1)
Quarter: 2014Q1

REPORT INFORMATION
  Report Type: Spontaneous
  Country: US (occurrence: None)
  Receive Date: 20140306
  Receipt Date: 20140306
  Transmission Date: 20141002
  Serious: Yes (Hospitalization)
  Sender: FDA-Public Use
  Company Number: 163-21880-13060263

PATIENT
  Age: 80 Year
  Sex: Female
  Weight: 65.77 kg

DRUGS (8)
  1. REVLIMID (LENALIDOMIDE) (25 MILLIGRAM, CAPSULES) [Suspect]
     Indication: PLASMA CELL MYELOMA
     Dosage: 1 IN 1 D
     Route: 048
     Dates: start: 20111116
  2. JANUVIA (SITAGLIPTIN PHOSPHATE) [Concomitant]
  3. DEXAMETHASONE [Concomitant]
  4. HIPREX (METHENAMINE HIPPURATE) [Concomitant]
  5. PRAVASTATIN SODIUM [Concomitant]
  6. OXYCODONE HCL (OXYCODONE HYDROCHLORIDE) [Concomitant]
  7. MULTIVITAMINS [Concomitant]
  8. VITAMIN D (ERGOCALCIFEROL) [Concomitant]

REACTIONS (2)
  - Large intestine polyp [None]
  - Diarrhoea [None]
